FAERS Safety Report 6673612-2 (Version None)
Quarter: 2010Q1

REPORT INFORMATION
  Report Type: 
  Country: None (occurrence: None)
  Receive Date: 20100329
  Receipt Date: 20091008
  Transmission Date: 20100710
  Serious: Yes (Other)
  Sender: FDA-Public Use
  Company Number: 2009281193

PATIENT
  Age: 24 Year
  Sex: Female

DRUGS (2)
  1. GEODON [Suspect]
     Dosage: 20 MG, 2X/DAY
  2. COGENTIN [Suspect]

REACTIONS (1)
  - TRISMUS [None]
